FAERS Safety Report 25370217 (Version 4)
Quarter: 2025Q3

REPORT INFORMATION
  Report Type: Spontaneous
  Country: EG (occurrence: EG)
  Receive Date: 20250528
  Receipt Date: 20250825
  Transmission Date: 20251020
  Serious: Yes (Life-Threatening, Other)
  Sender: NOVO NORDISK
  Company Number: EG-NOVOPROD-1400987

PATIENT
  Age: 27 Year
  Sex: Female
  Weight: 70 kg

DRUGS (6)
  1. TRESIBA [Suspect]
     Active Substance: INSULIN DEGLUDEC
     Indication: Type 1 diabetes mellitus
     Route: 058
  2. TRESIBA [Suspect]
     Active Substance: INSULIN DEGLUDEC
     Route: 058
  3. TRESIBA [Suspect]
     Active Substance: INSULIN DEGLUDEC
     Indication: Type 1 diabetes mellitus
     Route: 058
  4. TRESIBA [Suspect]
     Active Substance: INSULIN DEGLUDEC
     Indication: Type 1 diabetes mellitus
     Route: 058
  5. TRESIBA [Suspect]
     Active Substance: INSULIN DEGLUDEC
     Indication: Type 1 diabetes mellitus
     Route: 058
  6. NOVORAPID [Suspect]
     Active Substance: INSULIN ASPART
     Indication: Product used for unknown indication
     Route: 058

REACTIONS (11)
  - Hyperglycaemia [Recovered/Resolved]
  - Device breakage [Unknown]
  - Device leakage [Unknown]
  - Device failure [Unknown]
  - Device malfunction [Unknown]
  - Product storage error [Unknown]
  - Wrong technique in product usage process [Unknown]
  - Blood ketone body increased [Unknown]
  - Hypoglycaemia [Recovered/Resolved]
  - Product storage error [Unknown]
  - Product quality issue [Unknown]

NARRATIVE: CASE EVENT DATE: 20250201
